FAERS Safety Report 11180721 (Version 3)
Quarter: 2016Q2

REPORT INFORMATION
  Report Type: Spontaneous
  Country: JP (occurrence: JP)
  Receive Date: 20150611
  Receipt Date: 20160404
  Transmission Date: 20160815
  Serious: Yes (Other)
  Sender: FDA-Public Use
  Company Number: JP-GLAXOSMITHKLINE-JP2015JPN076468

PATIENT
  Sex: Male

DRUGS (7)
  1. EPZICOM [Suspect]
     Active Substance: ABACAVIR SULFATE\LAMIVUDINE
     Indication: HIV INFECTION
     Dosage: UNK, QD
     Route: 048
     Dates: start: 201505
  2. GASTER [Concomitant]
     Active Substance: FAMOTIDINE
     Route: 065
  3. TIVICAY [Suspect]
     Active Substance: DOLUTEGRAVIR SODIUM
     Indication: HIV INFECTION
     Dosage: 50 MG, QD
     Route: 048
     Dates: start: 201505
  4. BAKTAR [Concomitant]
     Active Substance: SULFAMETHOXAZOLE\TRIMETHOPRIM
     Route: 048
  5. URSO [Concomitant]
     Active Substance: URSODIOL
     Dosage: UNK
     Route: 048
  6. VALIXA [Concomitant]
     Active Substance: VALGANCICLOVIR
     Route: 048
  7. VFEND [Concomitant]
     Active Substance: VORICONAZOLE
     Route: 065

REACTIONS (2)
  - Chest X-ray abnormal [Recovering/Resolving]
  - Pneumonia cryptococcal [Recovering/Resolving]

NARRATIVE: CASE EVENT DATE: 201506
